FAERS Safety Report 9085003 (Version 2)
Quarter: 2013Q2

REPORT INFORMATION
  Report Type: Report from Study
  Country: AU (occurrence: AU)
  Receive Date: 20130218
  Receipt Date: 20130531
  Transmission Date: 20140414
  Serious: Yes (Hospitalization)
  Sender: FDA-Public Use
  Company Number: PHHY2012AU035522

PATIENT
  Sex: Female

DRUGS (9)
  1. ACLASTA [Suspect]
     Indication: OSTEOPOROSIS
     Dosage: 5 MG, UNK
     Route: 042
     Dates: start: 20090715
  2. ACLASTA [Suspect]
     Dosage: 5 MG, UNK
     Route: 042
     Dates: start: 20100825
  3. ACLASTA [Suspect]
     Dosage: 5 MG, UNK
     Route: 042
     Dates: start: 2011
  4. ACLASTA [Suspect]
     Dosage: 5 MG, UNK
     Route: 042
     Dates: start: 20120210
  5. ATACAND [Concomitant]
     Indication: HYPERTENSION
     Dosage: EVERY MORNING
     Route: 048
  6. EFFEXOR [Concomitant]
     Indication: DEPRESSION
     Dosage: 75 MG, EVERY MORNING
  7. LIPITOR [Concomitant]
     Indication: HYPERLIPIDAEMIA
     Dosage: 40 MG, EVERY NIGHT
     Route: 048
  8. FAMOTIDINE [Concomitant]
     Indication: GASTROOESOPHAGEAL REFLUX DISEASE
     Dosage: 40 MG, EVERY MORNING
  9. PLAVIX [Concomitant]
     Indication: CEREBROVASCULAR DISORDER
     Dosage: 75 MG, EVERY MORNING
     Route: 048

REACTIONS (10)
  - Prurigo [Unknown]
  - Urticaria [Unknown]
  - Alopecia [Unknown]
  - Pruritus [Unknown]
  - Rash pruritic [Recovered/Resolved]
  - Dyspnoea [Unknown]
  - Skin ulcer [Unknown]
  - Cellulitis [Unknown]
  - Dizziness [Not Recovered/Not Resolved]
  - Local swelling [Not Recovered/Not Resolved]
